FAERS Safety Report 6166842-X (Version None)
Quarter: 2009Q2

REPORT INFORMATION
  Report Type: 
  Country: None (occurrence: None)
  Receive Date: 20090424
  Receipt Date: 20090416
  Transmission Date: 20091009
  Serious: Yes (Congenital Anomaly)
  Sender: FDA-Public Use
  Company Number: A0680227A

PATIENT
  Sex: Male
  Weight: 3.1 kg

DRUGS (7)
  1. PAXIL [Suspect]
     Indication: OBSESSIVE-COMPULSIVE DISORDER
     Dosage: 20MG PER DAY
     Dates: start: 19990101, end: 20030101
  2. PAROXETINE HYDROCHLORIDE [Suspect]
     Indication: OBSESSIVE-COMPULSIVE DISORDER
     Dosage: 20MG PER DAY
     Dates: start: 19990101, end: 20030101
  3. PROMETHAZINE [Concomitant]
     Dates: start: 20030327, end: 20030701
  4. AMBIEN [Concomitant]
     Dates: start: 20030711
  5. VITAMIN TAB [Concomitant]
  6. ICAR [Concomitant]
  7. RHOGAM [Concomitant]

REACTIONS (4)
  - CONGENITAL ANOMALY [None]
  - DRUG EXPOSURE DURING PREGNANCY [None]
  - FOETAL MALPRESENTATION [None]
  - TALIPES [None]
